FAERS Safety Report 19481215 (Version 3)
Quarter: 2021Q3

REPORT INFORMATION
  Report Type: Spontaneous
  Country: JP (occurrence: JP)
  Receive Date: 20210701
  Receipt Date: 20210713
  Transmission Date: 20211014
  Serious: Yes (Other)
  Sender: FDA-Public Use
  Company Number: JP-PFIZER INC-2021777942

PATIENT
  Age: 73 Year
  Sex: Female

DRUGS (8)
  1. ATEZOLIZUMAB. [Suspect]
     Active Substance: ATEZOLIZUMAB
     Indication: SARCOMA
     Dosage: INDUCTION PHASE AFTER THREE CYCLES
  2. ATEZOLIZUMAB. [Suspect]
     Active Substance: ATEZOLIZUMAB
     Indication: NON-SMALL CELL LUNG CANCER
     Dosage: MAINTENANCE PHASE
  3. CARBOPLATIN. [Suspect]
     Active Substance: CARBOPLATIN
     Indication: SARCOMA
     Dosage: INDUCTION PHASE AFTER THREE CYCLES
  4. CARBOPLATIN. [Suspect]
     Active Substance: CARBOPLATIN
     Indication: NON-SMALL CELL LUNG CANCER
  5. BEVACIZUMAB. [Suspect]
     Active Substance: BEVACIZUMAB
     Indication: SARCOMA
     Dosage: INDUCTION PHASE AFTER THREE CYCLES
  6. BEVACIZUMAB. [Suspect]
     Active Substance: BEVACIZUMAB
     Indication: NON-SMALL CELL LUNG CANCER
     Dosage: MAINTENANCE PHASE
  7. PACLITAXEL. [Suspect]
     Active Substance: PACLITAXEL
     Indication: SARCOMA
     Dosage: INDUCTION PHASE AFTER THREE CYCLES
  8. PACLITAXEL. [Suspect]
     Active Substance: PACLITAXEL
     Indication: NON-SMALL CELL LUNG CANCER

REACTIONS (2)
  - Fatigue [Unknown]
  - Nausea [Unknown]
